FAERS Safety Report 5723585-1 (Version None)
Quarter: 2008Q2

REPORT INFORMATION
  Report Type: 
  Country: None (occurrence: None)
  Receive Date: 20080430
  Receipt Date: 20080429
  Transmission Date: 20081010
  Serious: Yes (Other)
  Sender: FDA-Public Use
  Company Number: B0518771A

PATIENT
  Age: 71 Year
  Sex: Male

DRUGS (3)
  1. CARVEDILOL [Suspect]
     Indication: DRUG USE FOR UNKNOWN INDICATION
     Route: 065
  2. BLOOD PRESSURE MEDICATION [Concomitant]
  3. CHOLESTEROL REDUCING AGENT NAME NOT KNOWN [Concomitant]

REACTIONS (2)
  - HAEMORRHAGE [None]
  - PRURITUS GENERALISED [None]
